FAERS Safety Report 19403446 (Version 1)
Quarter: 2021Q2

REPORT INFORMATION
  Report Type: Report from Study
  Country: US (occurrence: US)
  Receive Date: 20210611
  Receipt Date: 20210611
  Transmission Date: 20210717
  Serious: Yes (Other)
  Sender: FDA-Public Use
  Company Number: US-TAIHO ONCOLOGY  INC-EU-2021-01797

PATIENT
  Age: 43 Year
  Sex: Male

DRUGS (31)
  1. BOSWELLIA [Concomitant]
     Active Substance: DIETARY SUPPLEMENT\HERBALS
  2. MELATONIN [Concomitant]
     Active Substance: MELATONIN
  3. RESVERATROL [Concomitant]
     Active Substance: DIETARY SUPPLEMENT\RESVERATROL
  4. MILK THISTLE [Concomitant]
     Active Substance: DIETARY SUPPLEMENT\HERBALS\MILK THISTLE
  5. TURMERIC [Concomitant]
     Active Substance: HERBALS\TURMERIC
  6. VITAMIN C [Concomitant]
     Active Substance: ASCORBIC ACID
  7. CAPECITABINE. [Concomitant]
     Active Substance: CAPECITABINE
  8. IVERMECTIN. [Concomitant]
     Active Substance: IVERMECTIN
  9. NALTREXONE [Concomitant]
     Active Substance: NALTREXONE
  10. CHLORELLA [Concomitant]
     Active Substance: DIETARY SUPPLEMENT
  11. CLARITIN [Concomitant]
     Active Substance: LORATADINE
  12. GLUCOSAMINE [Concomitant]
     Active Substance: GLUCOSAMINE
  13. MCT [Concomitant]
  14. NIACIN. [Concomitant]
     Active Substance: NIACIN
  15. VITAMIN D3 [Concomitant]
     Active Substance: CHOLECALCIFEROL
  16. CELEBREX [Concomitant]
     Active Substance: CELECOXIB
  17. DIPYRIDAMOLE. [Concomitant]
     Active Substance: DIPYRIDAMOLE
  18. LEVOTHYROXIN [Concomitant]
     Active Substance: LEVOTHYROXINE
  19. METFORMIN [Concomitant]
     Active Substance: METFORMIN HYDROCHLORIDE
  20. METHIMAZOLE. [Concomitant]
     Active Substance: METHIMAZOLE
  21. LONSURF [Suspect]
     Active Substance: TIPIRACIL HYDROCHLORIDE\TRIFLURIDINE
     Indication: OESOPHAGEAL CARCINOMA
     Dosage: CYCLE UNKNOWN
     Route: 048
  22. BERBERINE [Concomitant]
     Active Substance: BERBERINE
  23. SAM?E [Concomitant]
     Active Substance: ADEMETIONINE
  24. TAGAMET [Concomitant]
     Active Substance: CIMETIDINE
  25. CIALIS [Concomitant]
     Active Substance: TADALAFIL
  26. FISH OIL [Concomitant]
     Active Substance: FISH OIL
  27. PREBIOTIC [Concomitant]
  28. ATORVASTATIN [Concomitant]
     Active Substance: ATORVASTATIN
  29. ITRACONAZOLE. [Concomitant]
     Active Substance: ITRACONAZOLE
  30. KEYTRUDA [Concomitant]
     Active Substance: PEMBROLIZUMAB
  31. QUERCETIN [Concomitant]
     Active Substance: QUERCETIN

REACTIONS (2)
  - Cerebrovascular accident [Not Recovered/Not Resolved]
  - Platelet count decreased [Not Recovered/Not Resolved]
